FAERS Safety Report 20633860 (Version 3)
Quarter: 2023Q1

REPORT INFORMATION
  Report Type: Other
  Country: CA (occurrence: CA)
  Receive Date: 20220324
  Receipt Date: 20230227
  Transmission Date: 20230417
  Serious: Yes (Other)
  Sender: FDA-Public Use
  Company Number: CA-ROCHE-3056286

PATIENT
  Age: 44 Year
  Sex: Female

DRUGS (29)
  1. XOLAIR [Suspect]
     Active Substance: OMALIZUMAB
     Indication: Chronic spontaneous urticaria
     Dosage: 300 MG, EVERY 4 WEEKS
     Route: 058
     Dates: start: 20161216
  2. XOLAIR [Suspect]
     Active Substance: OMALIZUMAB
     Dosage: 300 MG, EVERY 4 WEEKS
     Route: 058
     Dates: start: 20161219
  3. XOLAIR [Suspect]
     Active Substance: OMALIZUMAB
     Dosage: UNK
     Route: 058
     Dates: start: 20170112
  4. XOLAIR [Suspect]
     Active Substance: OMALIZUMAB
     Dosage: UNK
     Route: 058
     Dates: start: 20170727
  5. XOLAIR [Suspect]
     Active Substance: OMALIZUMAB
     Dosage: UNK
     Route: 058
     Dates: start: 20171019
  6. XOLAIR [Suspect]
     Active Substance: OMALIZUMAB
     Dosage: 300 MG, EVERY 4 WEEKS
     Route: 058
     Dates: start: 20171214
  7. XOLAIR [Suspect]
     Active Substance: OMALIZUMAB
     Dosage: 300 MG, EVERY 4 WEEKS
     Route: 058
     Dates: start: 20180306
  8. XOLAIR [Suspect]
     Active Substance: OMALIZUMAB
     Dosage: 300 MG, EVERY 4 WEEKS
     Route: 058
     Dates: start: 20180529
  9. XOLAIR [Suspect]
     Active Substance: OMALIZUMAB
     Dosage: 300 MG, EVERY 4 WEEKS
     Route: 058
     Dates: start: 20180626
  10. XOLAIR [Suspect]
     Active Substance: OMALIZUMAB
     Dosage: 300 MG, EVERY 4 WEEKS
     Route: 058
     Dates: start: 20180821
  11. XOLAIR [Suspect]
     Active Substance: OMALIZUMAB
     Dosage: 300 MG, EVERY 4 WEEKS
     Route: 058
     Dates: start: 20181122
  12. XOLAIR [Suspect]
     Active Substance: OMALIZUMAB
     Dosage: 300 MG, EVERY 4 WEEKS
     Route: 058
     Dates: start: 20181220
  13. XOLAIR [Suspect]
     Active Substance: OMALIZUMAB
     Dosage: 300 MG, EVERY 4 WEEKS
     Route: 058
     Dates: start: 20190212
  14. XOLAIR [Suspect]
     Active Substance: OMALIZUMAB
     Dosage: 300 MG, EVERY 4 WEEKS
     Route: 058
     Dates: start: 20190313
  15. XOLAIR [Suspect]
     Active Substance: OMALIZUMAB
     Dosage: 300 MG, EVERY 4 WEEKS
     Route: 058
     Dates: start: 20190411
  16. XOLAIR [Suspect]
     Active Substance: OMALIZUMAB
     Dosage: 300 MG, EVERY 4 WEEKS
     Route: 058
     Dates: start: 20191008
  17. XOLAIR [Suspect]
     Active Substance: OMALIZUMAB
     Dosage: 300 MG, EVERY 4 WEEKS
     Route: 058
     Dates: start: 20190620
  18. XOLAIR [Suspect]
     Active Substance: OMALIZUMAB
     Dosage: 300 MG, EVERY 4 WEEKS
     Route: 058
     Dates: start: 20190620
  19. XOLAIR [Suspect]
     Active Substance: OMALIZUMAB
     Dosage: 300 MG, EVERY 4 WEEKS
     Route: 058
     Dates: start: 20200518
  20. XOLAIR [Suspect]
     Active Substance: OMALIZUMAB
     Dosage: UNK
     Route: 065
     Dates: start: 20200519
  21. XOLAIR [Suspect]
     Active Substance: OMALIZUMAB
     Dosage: UNK
     Route: 065
     Dates: start: 20210728
  22. XOLAIR [Suspect]
     Active Substance: OMALIZUMAB
     Dosage: 300 MG, EVERY 4 WEEKS
     Route: 065
  23. XOLAIR [Suspect]
     Active Substance: OMALIZUMAB
     Dosage: 300 MG, QMO
     Route: 058
  24. LORAZEPAM [Concomitant]
     Active Substance: LORAZEPAM
  25. EBASTINE [Concomitant]
     Active Substance: EBASTINE
  26. CLARITIN [Concomitant]
     Active Substance: LORATADINE
  27. ATARAX [Concomitant]
     Active Substance: HYDROXYZINE HYDROCHLORIDE
  28. BENADRYL [Concomitant]
     Active Substance: DIPHENHYDRAMINE HYDROCHLORIDE
  29. DOXEPIN [Concomitant]
     Active Substance: DOXEPIN

REACTIONS (32)
  - Strabismus [Unknown]
  - Urticaria [Not Recovered/Not Resolved]
  - Erythema [Unknown]
  - Skin plaque [Unknown]
  - Pruritus [Unknown]
  - Drug ineffective [Unknown]
  - Irritability [Unknown]
  - Asthenia [Unknown]
  - Road traffic accident [Unknown]
  - Limb injury [Unknown]
  - Complex regional pain syndrome [Not Recovered/Not Resolved]
  - Peripheral swelling [Not Recovered/Not Resolved]
  - Peripheral coldness [Not Recovered/Not Resolved]
  - Pallor [Not Recovered/Not Resolved]
  - Dysgeusia [Unknown]
  - Blood pressure orthostatic [Recovered/Resolved]
  - Anxiety [Unknown]
  - Oedema peripheral [Unknown]
  - Quality of life decreased [Unknown]
  - Discomfort [Unknown]
  - Paraesthesia [Unknown]
  - Fatigue [Unknown]
  - Somnolence [Unknown]
  - Middle insomnia [Unknown]
  - Reflexes abnormal [Unknown]
  - Rash pruritic [Unknown]
  - Dizziness [Unknown]
  - Headache [Recovered/Resolved]
  - Nasopharyngitis [Not Recovered/Not Resolved]
  - Injection site haemorrhage [Unknown]
  - Injection site bruising [Unknown]
  - Therapeutic response delayed [Unknown]

NARRATIVE: CASE EVENT DATE: 20161216
